FAERS Safety Report 13116656 (Version 3)
Quarter: 2017Q1

REPORT INFORMATION
  Report Type: Spontaneous
  Country: JP (occurrence: JP)
  Receive Date: 20170116
  Receipt Date: 20170310
  Transmission Date: 20170428
  Serious: Yes (Hospitalization)
  Sender: FDA-Public Use
  Company Number: JP-ORION CORPORATION ORION PHARMA-ENT 2017-0001

PATIENT
  Age: 87 Year
  Sex: Male

DRUGS (14)
  1. LUVOX [Suspect]
     Active Substance: FLUVOXAMINE MALEATE
     Route: 048
     Dates: end: 20101031
  2. PRONON [Concomitant]
     Active Substance: PROPAFENONE
     Route: 065
  3. CARDENALIN [Concomitant]
     Active Substance: DOXAZOSIN MESYLATE
     Route: 065
  4. LENDORMIN [Concomitant]
     Active Substance: BROTIZOLAM
     Route: 065
  5. FERROMIA [Concomitant]
     Active Substance: FERROUS CITRATE
     Route: 065
  6. PANTOSIN [Concomitant]
     Active Substance: PANTETHINE
     Route: 065
  7. BIOSMIN [Concomitant]
     Route: 065
  8. ABTEI MAGNESIUM [Concomitant]
     Route: 065
  9. CINAL [Concomitant]
     Active Substance: ASCORBIC ACID\CALCIUM PANTOTHENATE
     Route: 065
  10. VASOLAN [Concomitant]
     Active Substance: VERAPAMIL HYDROCHLORIDE
     Route: 065
  11. MADOPAR [Concomitant]
     Active Substance: BENSERAZIDE HYDROCHLORIDE\LEVODOPA
     Route: 065
  12. PRAZAXA [Concomitant]
     Active Substance: DABIGATRAN ETEXILATE MESYLATE
     Route: 065
  13. COMTAN [Suspect]
     Active Substance: ENTACAPONE
     Indication: PARKINSON^S DISEASE
     Route: 048
     Dates: start: 20160601, end: 20161027
  14. NEUPRO [Concomitant]
     Active Substance: ROTIGOTINE
     Route: 065

REACTIONS (4)
  - Tuberculous pleurisy [Unknown]
  - Pulmonary oedema [Unknown]
  - Blood pressure systolic decreased [Unknown]
  - Diarrhoea [Unknown]

NARRATIVE: CASE EVENT DATE: 20161022
